FAERS Safety Report 8610260-9 (Version None)
Quarter: 2012Q3

REPORT INFORMATION
  Report Type: 
  Country: None (occurrence: None)
  Receive Date: 20120810
  Receipt Date: 20120810
  Transmission Date: 20120928
  Serious: Yes (Other)
  Sender: FDA-Public Use
  Company Number: None

PATIENT
  Age: 27 Year
  Sex: Male
  Weight: 101.6057 kg

DRUGS (2)
  1. SERTRALINE HYDROCHLORIDE [Suspect]
     Indication: DEPRESSION
     Dosage: 1 PILL ONCE A DAY PO
     Route: 048
     Dates: start: 20120801, end: 20120802
  2. PRIMOSAN [Concomitant]

REACTIONS (9)
  - VOMITING [None]
  - DIARRHOEA [None]
  - TREMOR [None]
  - SUICIDAL IDEATION [None]
  - ANGER [None]
  - AGGRESSION [None]
  - HEADACHE [None]
  - CRYING [None]
  - HALLUCINATION, AUDITORY [None]
